FAERS Safety Report 25979970 (Version 1)
Quarter: 2025Q4

REPORT INFORMATION
  Report Type: Spontaneous
  Country: US (occurrence: None)
  Receive Date: 20251029
  Receipt Date: 20251029
  Transmission Date: 20260118
  Serious: Yes (Hospitalization, Disabling)
  Sender: FDA-CTU
  Company Number: None

PATIENT
  Age: 54 Year
  Sex: Male
  Weight: 94.5 kg

DRUGS (10)
  1. INVEGA [Suspect]
     Active Substance: PALIPERIDONE
     Indication: Schizoaffective disorder
     Dosage: OTHER QUANTITY : 1 INJECTION(S);?
     Route: 030
  2. PALIPERIDONE [Suspect]
     Active Substance: PALIPERIDONE
  3. DEVICE [Concomitant]
     Active Substance: DEVICE
  4. LISINOPRIL [Concomitant]
     Active Substance: LISINOPRIL
  5. ATORVASTATIN [Concomitant]
     Active Substance: ATORVASTATIN
  6. ASPIRIN [Concomitant]
     Active Substance: ASPIRIN
  7. NAPROXEN [Concomitant]
     Active Substance: NAPROXEN
  8. ACETAMINOPHEN [Concomitant]
     Active Substance: ACETAMINOPHEN
  9. CLARITIN [Concomitant]
     Active Substance: LORATADINE
  10. MONTELUKAST SODIUM [Concomitant]
     Active Substance: MONTELUKAST SODIUM

REACTIONS (19)
  - Pneumonia [None]
  - Pleural effusion [None]
  - Respiratory tract infection [None]
  - Cold sweat [None]
  - Confusional state [None]
  - Back pain [None]
  - Dry skin [None]
  - Headache [None]
  - Somnolence [None]
  - Heart rate irregular [None]
  - Vomiting [None]
  - Anxiety [None]
  - Dry mouth [None]
  - Abdominal discomfort [None]
  - Constipation [None]
  - Dizziness [None]
  - Priapism [None]
  - Myalgia [None]
  - Dysphagia [None]

NARRATIVE: CASE EVENT DATE: 20251029
